FAERS Safety Report 14881911 (Version 3)
Quarter: 2019Q1

REPORT INFORMATION
  Report Type: Spontaneous
  Country: PR (occurrence: PR)
  Receive Date: 20180511
  Receipt Date: 20190311
  Transmission Date: 20190417
  Serious: No
  Sender: FDA-Public Use
  Company Number: PR-PFIZER INC-2018193043

PATIENT
  Age: 66 Year
  Sex: Female
  Weight: 82 kg

DRUGS (3)
  1. IBRANCE [Suspect]
     Active Substance: PALBOCICLIB
     Dosage: 125 MG, CYCLIC (1 CAP DAILY FOR 21 DAYS ON, 7 DAYS OFF.)
     Dates: start: 20180430
  2. IBRANCE [Suspect]
     Active Substance: PALBOCICLIB
     Indication: BREAST CANCER FEMALE
     Dosage: 125 MG, DAILY
     Route: 048
     Dates: start: 20180402
  3. IBRANCE [Suspect]
     Active Substance: PALBOCICLIB
     Dosage: 125 MG, DAILY
     Route: 048
     Dates: start: 20180402

REACTIONS (5)
  - Platelet count decreased [Unknown]
  - Rash [Unknown]
  - Diarrhoea [Unknown]
  - Vulvovaginal pruritus [Unknown]
  - White blood cell count decreased [Unknown]

NARRATIVE: CASE EVENT DATE: 2018
